FAERS Safety Report 9904810 (Version 1)
Quarter: 2014Q1

REPORT INFORMATION
  Report Type: Spontaneous
  Country: FR (occurrence: FR)
  Receive Date: 20140218
  Receipt Date: 20140218
  Transmission Date: 20141002
  Serious: Yes (Hospitalization)
  Sender: FDA-Public Use
  Company Number: FR-ASTRAZENECA-2014SE10083

PATIENT
  Age: 25797 Day
  Sex: Female

DRUGS (6)
  1. CRESTOR [Suspect]
     Route: 048
     Dates: end: 20131211
  2. DAFALGAN [Suspect]
     Route: 065
     Dates: end: 20131211
  3. BISOPROLOL [Suspect]
     Route: 048
  4. AROMASINE [Suspect]
     Indication: BREAST CANCER METASTATIC
     Route: 048
     Dates: end: 20131211
  5. EUPANTOL [Suspect]
     Route: 048
     Dates: end: 20131211
  6. EZETROL [Suspect]
     Route: 048
     Dates: end: 20131211

REACTIONS (3)
  - Hepatocellular injury [Recovering/Resolving]
  - Bile duct stenosis [Unknown]
  - Biliary neoplasm [Unknown]
